FAERS Safety Report 7073259-2 (Version None)
Quarter: 2010Q4

REPORT INFORMATION
  Report Type: 
  Country: None (occurrence: None)
  Receive Date: 20101029
  Receipt Date: 20100518
  Transmission Date: 20110411
  Serious: No
  Sender: FDA-Public Use
  Company Number: A0860215A

PATIENT
  Sex: Male

DRUGS (6)
  1. ADVAIR DISKUS 100/50 [Suspect]
     Indication: CHRONIC OBSTRUCTIVE PULMONARY DISEASE
     Dosage: 1PUFF TWICE PER DAY
     Route: 055
  2. VALIUM [Concomitant]
  3. PERCOCET [Concomitant]
  4. CENTRUM SILVER [Concomitant]
  5. POTASSIUM CHLORIDE [Concomitant]
  6. GELATIN [Concomitant]

REACTIONS (5)
  - BLOOD PRESSURE SYSTOLIC INCREASED [None]
  - DYSPHONIA [None]
  - MUSCLE SPASMS [None]
  - PALPITATIONS [None]
  - TREMOR [None]
